FAERS Safety Report 11086995 (Version 1)
Quarter: 2015Q2

REPORT INFORMATION
  Report Type: Spontaneous
  Country: US (occurrence: None)
  Receive Date: 20150501
  Receipt Date: 20150501
  Transmission Date: 20150821
  Serious: Yes (Other)
  Sender: FDA-Public Use
  Company Number: None

PATIENT
  Age: 30 Year
  Sex: Female

DRUGS (1)
  1. LUPANETA PACK [Suspect]
     Active Substance: ISOPROPYL ALCOHOL\LEUPROLIDE ACETATE\NORETHINDRONE ACETATE
     Indication: ENDOMETRIOSIS
     Dosage: 11.25MG INJECT Q 3 MONTHS INTRAMUSCULAR
     Route: 030
     Dates: start: 20150317, end: 20150401

REACTIONS (1)
  - Migraine [None]

NARRATIVE: CASE EVENT DATE: 20150318
